FAERS Safety Report 9123507 (Version 3)
Quarter: 2013Q1

REPORT INFORMATION
  Report Type: Spontaneous
  Country: ES (occurrence: None)
  Receive Date: 20130129
  Receipt Date: 20130226
  Transmission Date: 20140127
  Serious: Yes (Hospitalization, Other)
  Sender: FDA-Public Use
  Company Number: ES-ZYDUS-000924

PATIENT
  Age: 54 Year
  Sex: Male

DRUGS (4)
  1. METFORMIN (METFORMIN) [Suspect]
  2. INSULIN LANTUS (INSULIN LANTUS) [Concomitant]
  3. VALSARTAN(VALSARTAN) [Concomitant]
  4. AMLODIPINE(AMLODIPINE) [Concomitant]

REACTIONS (13)
  - Blindness transient [None]
  - Lactic acidosis [None]
  - Hypoglycaemia [None]
  - Hyperventilation [None]
  - Renal failure acute [None]
  - Diarrhoea [None]
  - Vomiting [None]
  - Diabetic retinopathy [None]
  - Vitreous haemorrhage [None]
  - Kussmaul respiration [None]
  - Blood pressure decreased [None]
  - Heart rate increased [None]
  - Confusional state [None]
